FAERS Safety Report 17389197 (Version 2)
Quarter: 2020Q2

REPORT INFORMATION
  Report Type: Spontaneous
  Country: US (occurrence: US)
  Receive Date: 20200207
  Receipt Date: 20200602
  Transmission Date: 20200713
  Serious: Yes (Other)
  Sender: FDA-Public Use
  Company Number: US-PFIZER INC-2020053485

PATIENT
  Age: 27 Year
  Sex: Female

DRUGS (7)
  1. DILANTIN [Suspect]
     Active Substance: PHENYTOIN
     Indication: EPILEPSY
     Dosage: 30 MG, DAILY
     Route: 048
     Dates: start: 20111214
  2. DILANTIN [Suspect]
     Active Substance: PHENYTOIN
     Indication: EPILEPSY
     Dosage: 3 DF, DAILY
     Route: 048
     Dates: start: 20100222
  3. DILANTIN [Suspect]
     Active Substance: PHENYTOIN
     Indication: GENERALISED TONIC-CLONIC SEIZURE
  4. DILANTIN [Suspect]
     Active Substance: PHENYTOIN
     Indication: FOCAL DYSCOGNITIVE SEIZURES
  5. DILANTIN [Suspect]
     Active Substance: PHENYTOIN
     Indication: GENERALISED TONIC-CLONIC SEIZURE
  6. DILANTIN [Suspect]
     Active Substance: PHENYTOIN
     Dosage: UNK, (DECADES)
     Route: 048
  7. DILANTIN [Suspect]
     Active Substance: PHENYTOIN
     Indication: FOCAL DYSCOGNITIVE SEIZURES
     Dosage: 300 MG, 1X/DAY (3 CAPSULES AT BEDTIME)
     Route: 048

REACTIONS (6)
  - Toothache [Unknown]
  - Gingival bleeding [Unknown]
  - Cerebellar atrophy [Unknown]
  - Eye pain [Unknown]
  - Wallerian degeneration [Unknown]
  - Gliosis [Unknown]

NARRATIVE: CASE EVENT DATE: 20060517
